FAERS Safety Report 7282712-8 (Version None)
Quarter: 2010Q4

REPORT INFORMATION
  Report Type: 
  Country: None (occurrence: None)
  Receive Date: 20101221
  Receipt Date: 20091027
  Transmission Date: 20110411
  Serious: Yes (Hospitalization, Other)
  Sender: FDA-Public Use
  Company Number: WAES 0910USA00984

PATIENT
  Age: 53 Year
  Sex: Male
  Weight: 117.9352 kg

DRUGS (7)
  1. JANUVIA [Suspect]
     Indication: DIABETES MELLITUS
     Dosage: PO
     Route: 048
     Dates: start: 20090630, end: 20090101
  2. ACTOS [Concomitant]
  3. DIOVAN HCT [Concomitant]
  4. LIPITOR [Concomitant]
  5. PREVACID [Concomitant]
  6. GLYBURIDE [Concomitant]
  7. METFORMIN [Concomitant]

REACTIONS (1)
  - PANCREATITIS [None]
